FAERS Safety Report 6923143-7 (Version None)
Quarter: 2010Q3

REPORT INFORMATION
  Report Type: 
  Country: None (occurrence: None)
  Receive Date: 20100813
  Receipt Date: 20100802
  Transmission Date: 20110219
  Serious: Yes (Other)
  Sender: FDA-Public Use
  Company Number: US-ROCHE-664687

PATIENT
  Age: 47 Year
  Sex: Male

DRUGS (1)
  1. ENFUVIRTIDE [Suspect]
     Route: 058
     Dates: end: 20070201

REACTIONS (1)
  - AMYLOIDOSIS [None]
